FAERS Safety Report 4388258-9 (Version None)
Quarter: 2004Q2

REPORT INFORMATION
  Report Type: 
  Country: None (occurrence: None)
  Receive Date: 20040629
  Receipt Date: 20040629
  Transmission Date: 20050107
  Serious: Yes (Death)
  Sender: FDA-Public Use
  Company Number: None

PATIENT
  Age: 66 Year
  Sex: Male

DRUGS (2)
  1. TAXOTERE [Suspect]
     Indication: NEOPLASM MALIGNANT
     Dosage: 75 MG/M2 Q 3 WKS
  2. FLUOROURACIL [Suspect]
     Indication: NEOPLASM MALIGNANT
     Dosage: 2600 MG/M2 Q3 WK

REACTIONS (15)
  - ANGIONEUROTIC OEDEMA [None]
  - ANXIETY [None]
  - APHAGIA [None]
  - ASTHENIA [None]
  - BLOOD ALBUMIN DECREASED [None]
  - CATHETER SITE INFECTION [None]
  - GENERALISED OEDEMA [None]
  - HEPATIC CONGESTION [None]
  - HYPERSENSITIVITY [None]
  - HYPONATRAEMIA [None]
  - IDIOSYNCRATIC DRUG REACTION [None]
  - MUCOSAL INFLAMMATION [None]
  - MULTI-ORGAN FAILURE [None]
  - PULMONARY OEDEMA [None]
  - RENAL TUBULAR NECROSIS [None]
